FAERS Safety Report 7285980-1 (Version None)
Quarter: 2011Q1

REPORT INFORMATION
  Report Type: 
  Country: None (occurrence: None)
  Receive Date: 20110210
  Receipt Date: 20110202
  Transmission Date: 20110831
  Serious: Yes (Life-Threatening, Hospitalization)
  Sender: FDA-Public Use
  Company Number: JP-AMGEN-JPNCT2010008250

PATIENT
  Age: 41 Year
  Sex: Female
  Weight: 45 kg

DRUGS (25)
  1. PANITUMUMAB [Suspect]
     Indication: COLORECTAL CANCER
     Dosage: 6 MG/KG, Q2WK
     Route: 041
     Dates: start: 20101104, end: 20101216
  2. IRINOTECAN HYDROCHLORIDE [Concomitant]
     Indication: COLORECTAL CANCER
     Route: 041
     Dates: start: 20101104
  3. MINOMYCIN [Concomitant]
     Route: 048
  4. FLUOROURACIL [Concomitant]
     Indication: COLORECTAL CANCER
     Route: 040
     Dates: start: 20101104
  5. CALCIUM LEVOFOLINATE [Concomitant]
     Indication: COLORECTAL CANCER
     Route: 041
     Dates: start: 20101104
  6. MAGNESIUM SULFATE [Concomitant]
     Dosage: 2 DF, UNK
     Route: 042
  7. ALOXI [Concomitant]
     Route: 042
  8. GLYCYRON [Concomitant]
     Route: 048
  9. URSO 250 [Concomitant]
     Route: 048
  10. DEXART [Concomitant]
     Route: 042
  11. FLUOROURACIL [Concomitant]
     Route: 041
     Dates: start: 20101104
  12. FLUOROURACIL [Concomitant]
     Route: 041
     Dates: start: 20101104, end: 20101216
  13. ELENTAL [Concomitant]
     Route: 048
  14. GASLON N OD [Concomitant]
     Route: 048
  15. GASTER [Concomitant]
     Route: 042
  16. ANTIHISTAMINES [Concomitant]
     Indication: PROPHYLAXIS
     Route: 065
  17. EMEND [Concomitant]
     Route: 048
  18. HACHIAZULE [Concomitant]
     Route: 049
  19. IRINOTECAN HYDROCHLORIDE [Concomitant]
     Route: 041
     Dates: start: 20101104, end: 20101216
  20. CALCIUM LEVOFOLINATE [Concomitant]
     Route: 041
     Dates: start: 20101104, end: 20101216
  21. SOLU-MEDROL [Concomitant]
     Route: 042
  22. CORTICOSTEROIDS [Concomitant]
     Indication: PROPHYLAXIS
     Route: 065
  23. TALION [Concomitant]
     Route: 048
  24. DIFLAL CREAM [Concomitant]
     Route: 062
  25. PARIET [Concomitant]
     Route: 048

REACTIONS (6)
  - ELECTROCARDIOGRAM QT PROLONGED [None]
  - SKIN FISSURES [None]
  - STOMATITIS [None]
  - HYPOMAGNESAEMIA [None]
  - BLOOD CALCIUM DECREASED [None]
  - DRY SKIN [None]
